FAERS Safety Report 16746586 (Version 1)
Quarter: 2019Q3

REPORT INFORMATION
  Report Type: Spontaneous
  Country: NL (occurrence: NL)
  Receive Date: 20190827
  Receipt Date: 20190827
  Transmission Date: 20191005
  Serious: Yes (Other)
  Sender: FDA-Public Use
  Company Number: NL-MYLANLABS-2019M1079475

PATIENT
  Age: 41 Year
  Sex: Female

DRUGS (6)
  1. NEXIUM [Concomitant]
     Active Substance: ESOMEPRAZOLE MAGNESIUM
     Dosage: 20 MG, UNK (2 DAYS)
     Route: 065
  2. OMEPRAZOLE. [Suspect]
     Active Substance: OMEPRAZOLE
     Indication: PRODUCT USED FOR UNKNOWN INDICATION
     Dosage: UNK
     Route: 065
  3. NEXIUM [Concomitant]
     Active Substance: ESOMEPRAZOLE MAGNESIUM
     Dosage: 40 MILLIGRAM
     Route: 065
  4. ULCOGANT [Concomitant]
     Active Substance: SUCRALFATE
     Indication: PRODUCT USED FOR UNKNOWN INDICATION
     Dosage: 1000 MILLIGRAM
     Route: 065
  5. LORMETAZEPAM [Suspect]
     Active Substance: LORMETAZEPAM
     Indication: PRODUCT USED FOR UNKNOWN INDICATION
     Dosage: 3 MILLIGRAM
     Route: 065
     Dates: start: 20091221
  6. LORMETAZEPAM [Suspect]
     Active Substance: LORMETAZEPAM
     Dosage: 2 MILLIGRAM
     Route: 065
     Dates: start: 20100222

REACTIONS (16)
  - Hiatus hernia [Unknown]
  - Helicobacter test positive [Unknown]
  - Abdominal discomfort [Unknown]
  - Abdominal pain upper [Unknown]
  - Oropharyngeal pain [Unknown]
  - Stress [Unknown]
  - Drug ineffective [Unknown]
  - Glossodynia [Unknown]
  - Burn oesophageal [Unknown]
  - Odynophagia [Unknown]
  - Gastrooesophageal reflux disease [Recovered/Resolved]
  - Insomnia [Unknown]
  - Gastrointestinal disorder [Unknown]
  - Laryngeal pain [Unknown]
  - Oral discomfort [Not Recovered/Not Resolved]
  - Oesophagitis [Unknown]
